FAERS Safety Report 12183844 (Version 1)
Quarter: 2016Q1

REPORT INFORMATION
  Report Type: Spontaneous
  Country: PT (occurrence: PT)
  Receive Date: 20160316
  Receipt Date: 20160316
  Transmission Date: 20160526
  Serious: Yes (Disabling)
  Sender: FDA-Public Use
  Company Number: PT-LEO PHARMA-239000

PATIENT
  Age: 75 Year
  Sex: Male
  Weight: 63 kg

DRUGS (5)
  1. PICATO [Suspect]
     Active Substance: INGENOL MEBUTATE
     Indication: PRODUCT USED FOR UNKNOWN INDICATION
     Route: 061
     Dates: start: 201508, end: 201508
  2. NORVASC [Concomitant]
     Active Substance: AMLODIPINE BESYLATE
     Indication: HYPERTENSION
     Route: 048
  3. MOTILIUM [Concomitant]
     Active Substance: DOMPERIDONE
     Indication: GASTROINTESTINAL DISORDER
     Route: 048
  4. PANKREOFLAT [Concomitant]
     Indication: GASTROINTESTINAL DISORDER
     Route: 048
  5. DIAZEPAM. [Concomitant]
     Active Substance: DIAZEPAM
     Indication: PRODUCT USED FOR UNKNOWN INDICATION
     Route: 048

REACTIONS (7)
  - Herpes zoster [Recovered/Resolved]
  - Purulent discharge [Recovered/Resolved]
  - Application site rash [Recovered/Resolved]
  - Application site pruritus [Recovered/Resolved]
  - Application site reaction [Recovered/Resolved]
  - Malaise [Recovered/Resolved]
  - Application site pain [Recovered/Resolved]

NARRATIVE: CASE EVENT DATE: 2015
